FAERS Safety Report 6148996-4 (Version None)
Quarter: 2009Q2

REPORT INFORMATION
  Report Type: 
  Country: None (occurrence: None)
  Receive Date: 20090409
  Receipt Date: 20090401
  Transmission Date: 20091009
  Serious: Yes (Other)
  Sender: FDA-Public Use
  Company Number: US-RANBAXY-2008US-19236

PATIENT

DRUGS (4)
  1. ISOTRETINOIN [Suspect]
     Indication: DRUG USE FOR UNKNOWN INDICATION
     Dosage: 40 MG, QD
     Route: 048
     Dates: start: 20081006, end: 20081107
  2. ISOTRETINOIN [Suspect]
     Dosage: 40 MG, BID
     Dates: start: 20060720
  3. AMNESTEEM [Suspect]
     Indication: DRUG USE FOR UNKNOWN INDICATION
     Dosage: 40 MG, BID
     Route: 048
     Dates: start: 20070119, end: 20070101
  4. AMNESTEEM [Suspect]
     Dosage: 40 MG, BID
     Route: 048
     Dates: start: 20061025

REACTIONS (1)
  - PREGNANCY [None]
